FAERS Safety Report 4653939-6 (Version None)
Quarter: 2005Q2

REPORT INFORMATION
  Report Type: 
  Country: None (occurrence: None)
  Receive Date: 20050504
  Receipt Date: 20050428
  Transmission Date: 20051028
  Serious: No
  Sender: FDA-Public Use
  Company Number: 2005-127826-NL

PATIENT
  Sex: Male

DRUGS (1)
  1. MIRTAZAPINE [Suspect]
     Dosage: 45 MG

REACTIONS (2)
  - BLOOD POTASSIUM INCREASED [None]
  - RENAL CELL CARCINOMA STAGE UNSPECIFIED [None]
